FAERS Safety Report 15890016 (Version 1)
Quarter: 2019Q1

REPORT INFORMATION
  Report Type: Spontaneous
  Country: US (occurrence: US)
  Receive Date: 20190130
  Receipt Date: 20190130
  Transmission Date: 20190417
  Serious: Yes (Disabling)
  Sender: FDA-Public Use
  Company Number: None

PATIENT
  Age: 62 Year
  Sex: Female
  Weight: 63 kg

DRUGS (1)
  1. AIMOVIG [Suspect]
     Active Substance: ERENUMAB-AOOE
     Indication: MIGRAINE
     Dosage: ?          QUANTITY:1 INJECTION(S);OTHER FREQUENCY:ONCE A MONTH;?
     Route: 030
     Dates: start: 20181018, end: 20190118

REACTIONS (9)
  - Anxiety [None]
  - Alopecia [None]
  - Irritability [None]
  - Depression [None]
  - Nausea [None]
  - Insomnia [None]
  - Tachycardia [None]
  - Migraine [None]
  - Constipation [None]

NARRATIVE: CASE EVENT DATE: 20181218
